FAERS Safety Report 18328111 (Version 1)
Quarter: 2020Q3

REPORT INFORMATION
  Report Type: Spontaneous
  Country: JP (occurrence: JP)
  Receive Date: 20200929
  Receipt Date: 20200929
  Transmission Date: 20201103
  Serious: Yes (Hospitalization, Other)
  Sender: FDA-Public Use
  Company Number: JP-SA-2020SA265396

PATIENT

DRUGS (1)
  1. FABRAZYME [Suspect]
     Active Substance: AGALSIDASE BETA
     Indication: FABRY^S DISEASE
     Dosage: DAILY DOSAGE: 60
     Route: 041
     Dates: start: 20170203, end: 20200924

REACTIONS (3)
  - Dizziness [Recovering/Resolving]
  - Condition aggravated [Recovering/Resolving]
  - Deafness [Recovering/Resolving]

NARRATIVE: CASE EVENT DATE: 202009
